FAERS Safety Report 10855128 (Version 1)
Quarter: 2015Q1

REPORT INFORMATION
  Report Type: Spontaneous
  Country: US (occurrence: None)
  Receive Date: 20150218
  Receipt Date: 20150218
  Transmission Date: 20150721
  Serious: Yes (Disabling, Other)
  Sender: FDA-Public Use
  Company Number: None

PATIENT
  Age: 48 Year
  Sex: Male
  Weight: 158.76 kg

DRUGS (2)
  1. LEVOFLOXACIN 750 MG [Suspect]
     Active Substance: LEVOFLOXACIN
     Indication: UPPER RESPIRATORY TRACT INFECTION
     Dosage: 1 TABLET
     Route: 048
     Dates: start: 20140923, end: 20140926
  2. LEVOFLOXACIN 750 MG [Suspect]
     Active Substance: LEVOFLOXACIN
     Indication: SINUSITIS
     Dosage: 1 TABLET
     Route: 048
     Dates: start: 20140923, end: 20140926

REACTIONS (2)
  - Peripheral swelling [None]
  - Oedema peripheral [None]

NARRATIVE: CASE EVENT DATE: 20140925
